FAERS Safety Report 5054455-2 (Version None)
Quarter: 2006Q3

REPORT INFORMATION
  Report Type: 
  Country: None (occurrence: None)
  Receive Date: 20060713
  Receipt Date: 20060705
  Transmission Date: 20061208
  Serious: Yes (Hospitalization)
  Sender: FDA-Public Use
  Company Number: TPA2006A01072

PATIENT
  Sex: Male

DRUGS (4)
  1. ACTOS [Suspect]
     Indication: DIABETES MELLITUS NON-INSULIN-DEPENDENT
     Dosage: 30 MG, 1 IN 1 D, PER ORAL
     Route: 048
  2. NEURONTIN [Suspect]
  3. LISINOPRIL [Concomitant]
  4. VYTORIN (SIMVASTATIN, EZETIMIBE) [Concomitant]

REACTIONS (3)
  - DRUG INTOLERANCE [None]
  - HYPOGLYCAEMIA [None]
  - INTERVERTEBRAL DISC PROTRUSION [None]
